FAERS Safety Report 5463668-7 (Version None)
Quarter: 2007Q3

REPORT INFORMATION
  Report Type: 
  Country: None (occurrence: None)
  Receive Date: 20070920
  Receipt Date: 20070911
  Transmission Date: 20080115
  Serious: Yes (Other)
  Sender: FDA-Public Use
  Company Number: FI-ABBOTT-07P-055-0417494-00

PATIENT

DRUGS (2)
  1. CYCLOSPORINE [Suspect]
     Indication: IMMUNOSUPPRESSION
     Route: 048
  2. CYCLOSPORINE [Suspect]

REACTIONS (1)
  - FEMALE GENITAL TRACT TUBERCULOSIS [None]
